FAERS Safety Report 24783593 (Version 3)
Quarter: 2025Q1

REPORT INFORMATION
  Report Type: Spontaneous
  Country: US (occurrence: US)
  Receive Date: 20241227
  Receipt Date: 20250317
  Transmission Date: 20250408
  Serious: Yes (Other)
  Sender: SANOFI AVENTIS
  Company Number: US-SA-2024SA380269

PATIENT
  Age: 5 Year
  Sex: Male

DRUGS (5)
  1. DUPIXENT [Suspect]
     Active Substance: DUPILUMAB
     Indication: Eosinophilic oesophagitis
     Dosage: 200 MG, QOW
     Route: 058
     Dates: start: 20241107
  2. FLUOCINOLONE ACETONIDE [Concomitant]
     Active Substance: FLUOCINOLONE ACETONIDE
  3. ALBUTEROL [Concomitant]
     Active Substance: ALBUTEROL
  4. FLOVENT [Concomitant]
     Active Substance: FLUTICASONE PROPIONATE
  5. EPINEPHRINE [Concomitant]
     Active Substance: EPINEPHRINE

REACTIONS (10)
  - Intestinal ulcer [Unknown]
  - Illness [Not Recovered/Not Resolved]
  - Gastroenteritis viral [Not Recovered/Not Resolved]
  - Vomiting [Not Recovered/Not Resolved]
  - Decreased appetite [Not Recovered/Not Resolved]
  - Condition aggravated [Not Recovered/Not Resolved]
  - Rhinorrhoea [Unknown]
  - Nasal congestion [Unknown]
  - Hypophagia [Unknown]
  - Diarrhoea [Not Recovered/Not Resolved]

NARRATIVE: CASE EVENT DATE: 20241201
